FAERS Safety Report 5836306-9 (Version None)
Quarter: 2008Q3

REPORT INFORMATION
  Report Type: 
  Country: None (occurrence: None)
  Receive Date: 20080807
  Receipt Date: 20080730
  Transmission Date: 20090109
  Serious: Yes (Other)
  Sender: FDA-Public Use
  Company Number: US-JNJFOC-20080800144

PATIENT
  Age: 43 Year
  Sex: Female
  Weight: 65.77 kg

DRUGS (2)
  1. TYLENOL (CAPLET) [Suspect]
     Indication: ARTHRITIS
  2. TYLENOL (CAPLET) [Suspect]
     Indication: PAIN IN EXTREMITY

REACTIONS (1)
  - DEPENDENCE [None]
